FAERS Safety Report 7486027-4 (Version None)
Quarter: 2011Q2

REPORT INFORMATION
  Report Type: 
  Country: None (occurrence: None)
  Receive Date: 20110517
  Receipt Date: 20110407
  Transmission Date: 20111010
  Serious: Yes (Life-Threatening)
  Sender: FDA-Public Use
  Company Number: JP-BAYER-2011-030280

PATIENT
  Age: 38 Year
  Sex: Female

DRUGS (1)
  1. MAGNEVIST [Suspect]
     Indication: NUCLEAR MAGNETIC RESONANCE IMAGING
     Dosage: 11 ML, ONCE
     Route: 042
     Dates: start: 20110406, end: 20110406

REACTIONS (6)
  - SNEEZING [None]
  - LARYNGEAL OEDEMA [None]
  - PALPITATIONS [None]
  - PRURITUS [None]
  - OROPHARYNGEAL DISCOMFORT [None]
  - URTICARIA [None]
